FAERS Safety Report 12639250 (Version 1)
Quarter: 2016Q3

REPORT INFORMATION
  Report Type: Spontaneous
  Country: US (occurrence: US)
  Receive Date: 20160810
  Receipt Date: 20160810
  Transmission Date: 20161109
  Serious: No
  Sender: FDA-Public Use
  Company Number: US-ACTELION-A-NJ2016-140299

PATIENT
  Age: 64 Year
  Sex: Male

DRUGS (19)
  1. VALCHLOR [Suspect]
     Active Substance: MECHLORETHAMINE
     Indication: MYCOSIS FUNGOIDES
     Dosage: UNK
     Route: 061
     Dates: start: 20151218
  2. TOPROL XL [Concomitant]
     Active Substance: METOPROLOL SUCCINATE
  3. ZINC SULFATE [Concomitant]
     Active Substance: ZINC SULFATE\ZINC SULFATE ANHYDROUS
  4. LASIX [Concomitant]
     Active Substance: FUROSEMIDE
  5. RITALIN [Concomitant]
     Active Substance: METHYLPHENIDATE HYDROCHLORIDE
  6. VITAMIN C [Concomitant]
     Active Substance: ASCORBIC ACID
  7. COENZYME Q10 [Concomitant]
     Active Substance: UBIDECARENONE
  8. ECOTRIN [Concomitant]
     Active Substance: ASPIRIN
  9. FLOMAX [Concomitant]
     Active Substance: TAMSULOSIN HYDROCHLORIDE
  10. JANUMET [Concomitant]
     Active Substance: METFORMIN HYDROCHLORIDE\SITAGLIPTIN PHOSPHATE
  11. KADIAN [Concomitant]
     Active Substance: MORPHINE SULFATE
  12. LOVAZA [Concomitant]
     Active Substance: OMEGA-3-ACID ETHYL ESTERS
  13. SIMVASTATIN. [Concomitant]
     Active Substance: SIMVASTATIN
  14. MULTIVITAMIN [Concomitant]
     Active Substance: VITAMINS
  15. SENOKOT [Concomitant]
     Active Substance: SENNOSIDES
  16. AMITIZA [Concomitant]
     Active Substance: LUBIPROSTONE
  17. DEXILANT [Concomitant]
     Active Substance: DEXLANSOPRAZOLE
  18. DULCOLAX NOS [Concomitant]
     Active Substance: BISACODYL OR DOCUSATE SODIUM
  19. TEMAZEPAM. [Concomitant]
     Active Substance: TEMAZEPAM

REACTIONS (1)
  - Rash [Unknown]
